FAERS Safety Report 5918633-X (Version None)
Quarter: 2008Q4

REPORT INFORMATION
  Report Type: 
  Country: None (occurrence: None)
  Receive Date: 20081015
  Receipt Date: 20081010
  Transmission Date: 20090506
  Serious: Yes (Disabling)
  Sender: FDA-Public Use
  Company Number: US-AVENTIS-200816466US

PATIENT
  Weight: 110 kg

DRUGS (1)
  1. LOVENOX [Suspect]
     Dates: start: 20080921

REACTIONS (2)
  - PARALYSIS [None]
  - SPINAL HAEMATOMA [None]
